FAERS Safety Report 7473629-4 (Version None)
Quarter: 2011Q2

REPORT INFORMATION
  Report Type: 
  Country: None (occurrence: None)
  Receive Date: 20110511
  Receipt Date: 20110505
  Transmission Date: 20111010
  Serious: Yes (Other)
  Sender: FDA-Public Use
  Company Number: BR-US-EMD SERONO, INC.-7000648

PATIENT
  Sex: Male

DRUGS (7)
  1. REBIF [Suspect]
     Indication: MULTIPLE SCLEROSIS
     Dates: start: 20070101
  2. BACLOFEN [Concomitant]
  3. FLUOXETINE [Concomitant]
  4. IMUNEM [Concomitant]
  5. RIVOTRIL [Concomitant]
  6. AMITRIPTYLINE HCL [Concomitant]
  7. CHLORPROMAZINE [Concomitant]

REACTIONS (8)
  - DYSARTHRIA [None]
  - HALLUCINATION [None]
  - ACTIVITIES OF DAILY LIVING IMPAIRED [None]
  - APHASIA [None]
  - DYSPHAGIA [None]
  - MULTIPLE SCLEROSIS [None]
  - MOBILITY DECREASED [None]
  - CHOKING [None]
